FAERS Safety Report 23960085 (Version 3)
Quarter: 2024Q3

REPORT INFORMATION
  Report Type: Spontaneous
  Country: ZA (occurrence: ZA)
  Receive Date: 20240611
  Receipt Date: 20240709
  Transmission Date: 20241016
  Serious: Yes (Hospitalization)
  Sender: MACLEODS
  Company Number: ZA-MACLEODS PHARMA-MAC2024047553

PATIENT

DRUGS (22)
  1. HYDROCHLOROTHIAZIDE\VALSARTAN [Suspect]
     Active Substance: HYDROCHLOROTHIAZIDE\VALSARTAN
     Indication: Hypertension
     Dosage: 80/12.5 MG AS DIRECTED
     Route: 048
  2. HYDROCHLOROTHIAZIDE\VALSARTAN [Suspect]
     Active Substance: HYDROCHLOROTHIAZIDE\VALSARTAN
     Indication: Hypertension
     Dosage: 80/12.5 MG TAKE ONE TABLET DAILY
     Route: 048
  3. DEXTROSE\ELECTROLYTES NOS [Suspect]
     Active Substance: DEXTROSE\ELECTROLYTES NOS
     Indication: Product used for unknown indication
     Dosage: AS DIRECTED
     Route: 048
  4. COLCHICINE [Suspect]
     Active Substance: COLCHICINE
     Indication: Product used for unknown indication
     Dosage: 0.5 MG TAKE ONE TABLET AS DIRECTED
     Route: 048
  5. XYLOMETAZOLINE HYDROCHLORIDE [Suspect]
     Active Substance: XYLOMETAZOLINE HYDROCHLORIDE
     Indication: Hypersensitivity
     Dosage: ONE SPRAY INTO BOTH NOSTRILS THREE TIMES A DAY
     Route: 045
  6. TIMOLOL MALEATE [Suspect]
     Active Substance: TIMOLOL MALEATE
     Indication: Glaucoma
     Dosage: 0.5 % INSTIL ONE DROP IN THE AFFECTED EYE
  7. AMYLMETACRESOL\ASCORBIC ACID\DICHLOROBENZYL ALCOHOL [Suspect]
     Active Substance: AMYLMETACRESOL\ASCORBIC ACID\DICHLOROBENZYL ALCOHOL
     Indication: Product used for unknown indication
     Dosage: SUCK ONE LOZENGE THREE HOURLY
     Route: 048
  8. DIETARY SUPPLEMENT\HERBALS [Concomitant]
     Active Substance: DIETARY SUPPLEMENT\HERBALS
     Indication: Product used for unknown indication
     Dosage: TAKE ONE DISSOLVED IN WATER THREE TIMES A DAY
     Route: 048
  9. CHLORPHENIRAMINE MALEATE [Concomitant]
     Active Substance: CHLORPHENIRAMINE MALEATE
     Dosage: 10 MG TAKE ONE TABLET DAILY AFTER MEALS
     Route: 048
  10. ASCORBIC ACID\ASPIRIN\CAFFEINE\MENTHOL\SUCROSE [Concomitant]
     Active Substance: ASCORBIC ACID\ASPIRIN\CAFFEINE\MENTHOL\SUCROSE
     Indication: Product used for unknown indication
     Dosage: ONE SACHET DISSOLVED IN THREE TIMES A DAY
     Route: 048
  11. ASCORBIC ACID\ASPIRIN\CAFFEINE\MENTHOL\SUCROSE [Concomitant]
     Active Substance: ASCORBIC ACID\ASPIRIN\CAFFEINE\MENTHOL\SUCROSE
     Dosage: AS DIRECTED
     Route: 048
  12. FLUTICASONE PROPIONATE\SALMETEROL XINAFOATE [Concomitant]
     Active Substance: FLUTICASONE PROPIONATE\SALMETEROL XINAFOATE
     Indication: Asthma
     Dosage: 25/125 MCG INHALE ONE PUFF TWICE A DAY
  13. BISOPROLOL [Concomitant]
     Active Substance: BISOPROLOL\BISOPROLOL FUMARATE
     Indication: Hypertension
     Dosage: 2.5 MG TAKE ONE TABLET DAILY
     Route: 048
  14. OMEPRAZOLE [Concomitant]
     Active Substance: OMEPRAZOLE
     Indication: Gastrooesophageal reflux disease
     Dosage: 20 MG TAKE ONE CAPSULE IN THE MORNING
     Route: 048
  15. METFORMIN [Concomitant]
     Active Substance: METFORMIN HYDROCHLORIDE
     Indication: Diabetes mellitus
     Dosage: 500 MG TAKE ONE TABLET DAILY
     Route: 048
  16. Inositol-choline-vit b complex/vitamins-lipotropics [Concomitant]
     Indication: Blood cholesterol
     Dosage: 20 MG TAKE ONE TABLET DAILY
     Route: 048
  17. CARBOXYMETHYLCELLULOSE\HYALURONIC ACID [Concomitant]
     Active Substance: CARBOXYMETHYLCELLULOSE\HYALURONIC ACID
     Indication: Product used for unknown indication
     Dosage: AS PER PACKAGE INSERT
  18. Vitamin b1/vitamin b6/vitamin b12/creatine/magnesium/fructose/vitamin [Concomitant]
     Indication: Product used for unknown indication
     Dosage: AS DIRECTED
     Route: 048
  19. Maize starch/pregelatinised maize starch/hydroxypropyl methylcellulose [Concomitant]
     Indication: Product used for unknown indication
     Dosage: TAKE ONE CAPSULE DAILY
     Route: 048
  20. LEVOCETIRIZINE\MONTELUKAST [Concomitant]
     Active Substance: LEVOCETIRIZINE\MONTELUKAST
     Indication: Asthma
     Dosage: 10 MG TAKE ONE TABLET DAILY
     Route: 048
  21. FLUOXETINE HYDROCHLORIDE [Concomitant]
     Active Substance: FLUOXETINE HYDROCHLORIDE
     Indication: Depression
     Dosage: 20 MG TAKE ONE CAPSULE DAILY
     Route: 048
  22. TIOTROPIUM BROMIDE [Concomitant]
     Active Substance: TIOTROPIUM BROMIDE
     Indication: Chronic obstructive pulmonary disease
     Dosage: 18 MCG ONE DAILY
     Route: 048

REACTIONS (2)
  - Fall [Recovering/Resolving]
  - Injury [Recovering/Resolving]
